FAERS Safety Report 7283139-5 (Version None)
Quarter: 2011Q1

REPORT INFORMATION
  Report Type: 
  Country: None (occurrence: None)
  Receive Date: 20110209
  Receipt Date: 20110131
  Transmission Date: 20110831
  Serious: Yes (Hospitalization, Other)
  Sender: FDA-Public Use
  Company Number: GB-JNJFOC-20101207653

PATIENT
  Age: 56 Year
  Sex: Male

DRUGS (8)
  1. WARFARIN [Interacting]
     Indication: ANTICOAGULANT THERAPY
     Route: 065
  2. DIGOXIN [Concomitant]
  3. WARFARIN [Interacting]
     Dosage: 6 MG AND 7 MG ON ALTERNATIVE DAYS
     Route: 065
  4. ALLOPURINOL [Concomitant]
  5. FUROSEMIDE [Concomitant]
  6. POTASSIUM EFFERVESCENT [Concomitant]
     Dosage: 2 TABLETS DAILY.
  7. MICONAZOLE [Suspect]
     Route: 048
  8. MICONAZOLE [Suspect]
     Indication: DIARRHOEA
     Dosage: 250MG 4 TABLETS IN A DAY FOR SUSPECTED FUNGAL DIARRHEA
     Route: 048

REACTIONS (4)
  - HAEMATOMA [None]
  - PROTHROMBIN TIME RATIO INCREASED [None]
  - HOSPITALISATION [None]
  - DRUG INTERACTION [None]
